FAERS Safety Report 5125954-X (Version None)
Quarter: 2006Q4

REPORT INFORMATION
  Report Type: 
  Country: None (occurrence: None)
  Receive Date: 20061012
  Receipt Date: 20061005
  Transmission Date: 20070319
  Serious: Yes (Hospitalization)
  Sender: FDA-Public Use
  Company Number: 2006PK02023

PATIENT
  Age: 78 Year
  Sex: Female

DRUGS (14)
  1. NEXIUM [Suspect]
     Indication: GASTRIC ULCER
     Route: 048
     Dates: start: 20050101, end: 20051206
  2. SEROPRAM [Suspect]
     Indication: DEPRESSION
     Route: 048
     Dates: start: 20040101, end: 20051218
  3. DILATREND [Concomitant]
     Indication: ESSENTIAL HYPERTENSION
     Route: 048
     Dates: start: 20051123
  4. ASPIRIN [Concomitant]
     Indication: PROPHYLAXIS
     Route: 048
  5. DUSPATALIN [Concomitant]
     Indication: ABDOMINAL PAIN
     Route: 048
     Dates: start: 20051123
  6. GLUCOPHAGE [Concomitant]
     Indication: DIABETES MELLITUS NON-INSULIN-DEPENDENT
     Route: 048
  7. SELIPRAN [Concomitant]
     Indication: HYPERLIPIDAEMIA
     Route: 048
  8. FOLVITE [Concomitant]
     Route: 048
     Dates: start: 20051224
  9. VITARUBIN [Concomitant]
     Route: 058
     Dates: start: 20051124
  10. NORVASC [Concomitant]
     Indication: ESSENTIAL HYPERTENSION
     Route: 048
     Dates: start: 20051202
  11. COVERSUM [Concomitant]
     Indication: ESSENTIAL HYPERTENSION
     Route: 048
     Dates: start: 20051203
  12. NEO-CITRAN [Concomitant]
     Route: 048
     Dates: start: 20051130
  13. ZOLPIDEM TARTRATE [Concomitant]
     Indication: INSOMNIA
  14. SINECOD [Concomitant]
     Indication: COUGH

REACTIONS (3)
  - HYPONATRAEMIA [None]
  - HYPOTENSION [None]
  - INAPPROPRIATE ANTIDIURETIC HORMONE SECRETION [None]
